FAERS Safety Report 17680861 (Version 1)
Quarter: 2020Q2

REPORT INFORMATION
  Report Type: Spontaneous
  Country: US (occurrence: US)
  Receive Date: 20200417
  Receipt Date: 20200417
  Transmission Date: 20200714
  Serious: No
  Sender: FDA-Public Use
  Company Number: None

PATIENT
  Age: 65 Year
  Sex: Female
  Weight: 51.26 kg

DRUGS (15)
  1. CAPECITABINE. [Suspect]
     Active Substance: CAPECITABINE
     Indication: PANCREATIC CARCINOMA
     Route: 048
     Dates: start: 20200403, end: 20200417
  2. GLIPIZIDE. [Concomitant]
     Active Substance: GLIPIZIDE
  3. HEPARIN SODIUM FLUSH [Concomitant]
  4. MORPHINE SULFATE ER [Concomitant]
     Active Substance: MORPHINE SULFATE
  5. MIRTAZAPINE. [Concomitant]
     Active Substance: MIRTAZAPINE
  6. PROMETHAZINE [Concomitant]
     Active Substance: PROMETHAZINE HYDROCHLORIDE
  7. XARELTO [Concomitant]
     Active Substance: RIVAROXABAN
  8. GABAPENTIN 100MG ,ORAL [Concomitant]
  9. LANTUS SOLOSTAR [Concomitant]
     Active Substance: INSULIN GLARGINE
  10. MULTIVITAMIN ADULTS, ORAL [Concomitant]
  11. GEMCITABINE. [Concomitant]
     Active Substance: GEMCITABINE
  12. NOVOLOG [Concomitant]
     Active Substance: INSULIN ASPART
  13. CREON [Concomitant]
     Active Substance: PANCRELIPASE AMYLASE\PANCRELIPASE LIPASE\PANCRELIPASE PROTEASE
  14. MELATONIN [Concomitant]
     Active Substance: MELATONIN
  15. OMEPRAZOLE. [Concomitant]
     Active Substance: OMEPRAZOLE

REACTIONS (1)
  - Hospice care [None]

NARRATIVE: CASE EVENT DATE: 20200417
